FAERS Safety Report 9981975 (Version 2)
Quarter: 2014Q1

REPORT INFORMATION
  Report Type: Report from Study
  Country: US (occurrence: US)
  Receive Date: 20140307
  Receipt Date: 20140307
  Transmission Date: 20141002
  Serious: No
  Sender: FDA-Public Use
  Company Number: US-ABBVIE-13P-163-1101790-00

PATIENT
  Age: 47 Year
  Sex: Female

DRUGS (6)
  1. HUMIRA [Suspect]
     Indication: PRODUCT USED FOR UNKNOWN INDICATION
     Route: 058
     Dates: start: 20130316
  2. HUMIRA [Suspect]
     Route: 058
  3. VITAMIN D [Concomitant]
     Indication: VITAMIN SUPPLEMENTATION
  4. VITAMIN B6 [Concomitant]
     Indication: VITAMIN SUPPLEMENTATION
  5. COLACE [Concomitant]
  6. FOLIC ACID [Concomitant]
     Indication: VITAMIN SUPPLEMENTATION

REACTIONS (5)
  - Local swelling [Unknown]
  - Sinusitis [Unknown]
  - Pain in extremity [Unknown]
  - Arthralgia [Unknown]
  - Injection site pain [Unknown]
